FAERS Safety Report 6546463-7 (Version None)
Quarter: 2010Q1

REPORT INFORMATION
  Report Type: 
  Country: None (occurrence: None)
  Receive Date: 20100115
  Receipt Date: 20091028
  Transmission Date: 20100710
  Serious: No
  Sender: FDA-Public Use
  Company Number: 2009-00694

PATIENT
  Age: 38 Year
  Sex: Male
  Weight: 99.7913 kg

DRUGS (1)
  1. COLD REMEDY GEL SWABS [Suspect]
     Dosage: Q 4 HRS - 3-4 DAYS; 6-7 MOS AGO - 3-4 DAYS

REACTIONS (1)
  - ANOSMIA [None]
